FAERS Safety Report 4849685-6 (Version None)
Quarter: 2005Q4

REPORT INFORMATION
  Report Type: 
  Country: None (occurrence: None)
  Receive Date: 20051115
  Receipt Date: 20050805
  Transmission Date: 20060501
  Serious: No
  Sender: FDA-Public Use
  Company Number: S05-USA-02878-01

PATIENT
  Age: 85 Year
  Sex: Male

DRUGS (10)
  1. NAMENDA [Suspect]
     Indication: DEMENTIA ALZHEIMER'S TYPE
     Dosage: 5 MG BID PO
     Route: 048
     Dates: start: 20050526, end: 20050601
  2. NAMENDA [Suspect]
     Indication: DEMENTIA ALZHEIMER'S TYPE
     Dosage: 15 MG QD PO
     Route: 048
     Dates: start: 20050602, end: 20050608
  3. NAMENDA [Suspect]
     Indication: DEMENTIA ALZHEIMER'S TYPE
     Dosage: 10 MG BID PO
     Route: 048
     Dates: start: 20050609
  4. NAMENDA [Suspect]
     Indication: DEMENTIA ALZHEIMER'S TYPE
     Dosage: 5 MG QD PO
     Route: 048
     Dates: start: 20050519, end: 20050525
  5. ARICEPT [Concomitant]
  6. ATENOLOL [Concomitant]
  7. LISINOPRIL [Concomitant]
  8. PREDNISONE [Concomitant]
  9. PLAVIX [Concomitant]
  10. FLUOXETINE [Concomitant]

REACTIONS (2)
  - BLOOD PRESSURE SYSTOLIC INCREASED [None]
  - SOMNOLENCE [None]
